FAERS Safety Report 18554133 (Version 1)
Quarter: 2020Q4

REPORT INFORMATION
  Report Type: Spontaneous
  Country: CN (occurrence: CN)
  Receive Date: 20201127
  Receipt Date: 20201127
  Transmission Date: 20210114
  Serious: Yes (Other)
  Sender: FDA-Public Use
  Company Number: CN-ASTRAZENECA-2020SF56408

PATIENT
  Age: 31118 Day
  Sex: Male
  Weight: 52 kg

DRUGS (2)
  1. SODIUM CHLORIDE. [Concomitant]
     Active Substance: SODIUM CHLORIDE
     Route: 055
     Dates: start: 20201025, end: 20201031
  2. PULMICORT TURBUHALER [Suspect]
     Active Substance: BUDESONIDE
     Indication: PNEUMONIA
     Route: 055
     Dates: start: 20201025, end: 20201031

REACTIONS (1)
  - Leukoplakia oral [Recovered/Resolved]

NARRATIVE: CASE EVENT DATE: 20201031
